FAERS Safety Report 8976956 (Version 1)
Quarter: 2012Q4

REPORT INFORMATION
  Report Type: 
  Country: US (occurrence: US)
  Receive Date: 20121220
  Receipt Date: 20121220
  Transmission Date: 20130627
  Serious: Yes (Hospitalization)
  Sender: FDA-Public Use
  Company Number: US-BAYER-2012-132314

PATIENT
  Age: 20 Year
  Sex: Female
  Weight: 67.57 kg

DRUGS (3)
  1. YASMIN [Suspect]
  2. YAZ [Suspect]
     Indication: DYSMENORRHEA
  3. OCELLA [Suspect]

REACTIONS (1)
  - Pulmonary embolism [None]
